FAERS Safety Report 5526277-7 (Version None)
Quarter: 2007Q4

REPORT INFORMATION
  Report Type: 
  Country: None (occurrence: None)
  Receive Date: 20071121
  Receipt Date: 20071121
  Transmission Date: 20080405
  Serious: Yes (Hospitalization)
  Sender: FDA-Public Use
  Company Number: None

PATIENT
  Age: 63 Year
  Sex: Male

DRUGS (2)
  1. DICLOFENAC [Suspect]
     Indication: PAIN
     Dosage: 50MG  BID  PO
     Route: 048
     Dates: start: 20070109, end: 20071002
  2. ASPIRIN [Suspect]
     Indication: CEREBROVASCULAR ACCIDENT PROPHYLAXIS
     Dosage: 81MG  EVERY DAY PO
     Route: 048
     Dates: start: 20070109, end: 20071002

REACTIONS (1)
  - GASTRIC HAEMORRHAGE [None]
